FAERS Safety Report 18564497 (Version 3)
Quarter: 2021Q4

REPORT INFORMATION
  Report Type: Report from Study
  Country: US (occurrence: US)
  Receive Date: 20201201
  Receipt Date: 20211030
  Transmission Date: 20220303
  Serious: Yes (Other)
  Sender: FDA-Public Use
  Company Number: US-NOVARTISTESTPH-NVSC2020US319893

PATIENT
  Age: 51 Year
  Sex: Female

DRUGS (1)
  1. ENTRESTO [Suspect]
     Active Substance: SACUBITRIL\VALSARTAN
     Indication: Cardiac failure congestive
     Dosage: 97/103 MG, BID
     Route: 048
     Dates: start: 2018

REACTIONS (6)
  - Myocardial infarction [Recovered/Resolved]
  - Cardiac failure [Recovered/Resolved]
  - Chest pain [Recovered/Resolved]
  - Flatulence [Recovered/Resolved]
  - Panic attack [Recovered/Resolved]
  - Stress [Not Recovered/Not Resolved]

NARRATIVE: CASE EVENT DATE: 20200301
